FAERS Safety Report 17160801 (Version 2)
Quarter: 2021Q4

REPORT INFORMATION
  Report Type: Report from Study
  Country: BE (occurrence: BE)
  Receive Date: 20191216
  Receipt Date: 20211117
  Transmission Date: 20220303
  Serious: Yes (Hospitalization)
  Sender: FDA-Public Use
  Company Number: BE-NOVARTISPH-NVSC2019BE034218

PATIENT
  Age: 48 Year
  Sex: Female
  Weight: 51 kg

DRUGS (4)
  1. RIBOCICLIB [Suspect]
     Active Substance: RIBOCICLIB
     Indication: Breast cancer
     Dosage: 400 MG, OT
     Route: 048
     Dates: start: 20170314
  2. LETROZOLE [Suspect]
     Active Substance: LETROZOLE
     Indication: Breast cancer
     Dosage: 2.5 MG, QD
     Route: 048
     Dates: start: 20170314
  3. STEOVIT FORTE [Concomitant]
     Indication: Metastases to bone
     Dosage: UNK
     Route: 048
     Dates: start: 20170222
  4. XGEVA [Concomitant]
     Active Substance: DENOSUMAB
     Indication: Bone lesion
     Dosage: 120 MG, QMO
     Route: 058
     Dates: start: 201703

REACTIONS (1)
  - Abdominal pain [Recovered/Resolved]

NARRATIVE: CASE EVENT DATE: 20190917
